FAERS Safety Report 13818276 (Version 1)
Quarter: 2017Q3

REPORT INFORMATION
  Report Type: Spontaneous
  Country: US (occurrence: US)
  Receive Date: 20170731
  Receipt Date: 20170731
  Transmission Date: 20171127
  Serious: No
  Sender: FDA-Public Use
  Company Number: US-ROCHE-690846

PATIENT
  Age: 93 Year
  Sex: Female
  Weight: 40.9 kg

DRUGS (3)
  1. PREMARIN [Concomitant]
     Active Substance: ESTROGENS, CONJUGATED
     Dosage: DRUG: PREMARIN VAGINAL CREAM
     Route: 065
  2. CALCITONIN [Concomitant]
     Active Substance: CALCITONIN
     Route: 065
  3. BONIVA [Suspect]
     Active Substance: IBANDRONATE SODIUM
     Indication: OSTEOPOROSIS
     Dosage: DOSE: 5-6 DOSES
     Route: 065

REACTIONS (2)
  - Drug ineffective [Unknown]
  - Bone density abnormal [Unknown]
